FAERS Safety Report 15150973 (Version 1)
Quarter: 2018Q3

REPORT INFORMATION
  Report Type: Spontaneous
  Country: US (occurrence: US)
  Receive Date: 20180716
  Receipt Date: 20180716
  Transmission Date: 20181010
  Serious: No
  Sender: FDA-Public Use
  Company Number: US-SA-2018SA183994

PATIENT
  Sex: Male
  Weight: 120.18 kg

DRUGS (1)
  1. DUPIXENT [Suspect]
     Active Substance: DUPILUMAB
     Indication: DERMATITIS ATOPIC
     Dosage: 1 DF, QOW
     Route: 058

REACTIONS (8)
  - Skin texture abnormal [Unknown]
  - Sleep disorder [Unknown]
  - Pruritus [Unknown]
  - Swelling [Unknown]
  - Erythema [Unknown]
  - Rash [Unknown]
  - Dry skin [Unknown]
  - Blister [Unknown]
